FAERS Safety Report 25623625 (Version 1)
Quarter: 2025Q3

REPORT INFORMATION
  Report Type: Spontaneous
  Country: US (occurrence: US)
  Receive Date: 20250730
  Receipt Date: 20250730
  Transmission Date: 20251020
  Serious: Yes (Other)
  Sender: BRISTOL-MYERS SQUIBB COMPANY
  Company Number: US-BRISTOL-MYERS SQUIBB COMPANY-2025-105371

PATIENT
  Age: 60 Year

DRUGS (2)
  1. ADAGRASIB [Suspect]
     Active Substance: ADAGRASIB
     Indication: Pancreatic carcinoma
  2. ADAGRASIB [Suspect]
     Active Substance: ADAGRASIB

REACTIONS (2)
  - Encephalopathy [Recovered/Resolved]
  - Off label use [Unknown]
